FAERS Safety Report 9055894 (Version 2)
Quarter: 2014Q1

REPORT INFORMATION
  Report Type: Spontaneous
  Country: US (occurrence: US)
  Receive Date: 20130206
  Receipt Date: 20140203
  Transmission Date: 20141002
  Serious: No
  Sender: FDA-Public Use
  Company Number: US-ALLERGAN-1201586US

PATIENT
  Sex: Male

DRUGS (6)
  1. RESTASIS [Suspect]
     Indication: DRY EYE
     Dosage: 2 GTT, BID
     Route: 047
     Dates: start: 201101
  2. RESTASIS [Suspect]
     Dosage: 2 GTT, BID
     Route: 047
  3. SYSTANE ULTRA [Concomitant]
     Indication: DRY EYE
     Dosage: 2 GTT, BID
     Route: 047
  4. SYSTANE ULTRA [Concomitant]
     Dosage: 2 GTT, TID
     Route: 047
  5. ARTIFICIAL TEARS [Concomitant]
     Indication: DRY EYE
     Dosage: UNK, BID
     Dates: start: 201101
  6. ARTIFICIAL TEARS [Concomitant]
     Dosage: UNK, TID

REACTIONS (4)
  - Eyelid irritation [Not Recovered/Not Resolved]
  - Eye irritation [Not Recovered/Not Resolved]
  - Erythema of eyelid [Not Recovered/Not Resolved]
  - Vision blurred [Not Recovered/Not Resolved]
